FAERS Safety Report 4401718-7 (Version None)
Quarter: 2004Q3

REPORT INFORMATION
  Report Type: 
  Country: None (occurrence: None)
  Receive Date: 20040714
  Receipt Date: 20040630
  Transmission Date: 20050211
  Serious: Yes (Life-Threatening, Hospitalization, Other)
  Sender: FDA-Public Use
  Company Number: US_0407103956

PATIENT
  Age: 11 Year
  Sex: Male
  Weight: 60 kg

DRUGS (4)
  1. HUMATROPE [Suspect]
     Indication: GROWTH HORMONE DEFICIENCY
     Dosage: 0.8 MG/1 DAY
     Dates: start: 20000109
  2. CORTEF [Concomitant]
  3. DDAVP [Concomitant]
  4. SYNTHROID [Concomitant]

REACTIONS (2)
  - GERM CELL CANCER [None]
  - HYPOPITUITARISM [None]
